FAERS Safety Report 5749528-2 (Version None)
Quarter: 2008Q2

REPORT INFORMATION
  Report Type: 
  Country: None (occurrence: None)
  Receive Date: 20080527
  Receipt Date: 20080520
  Transmission Date: 20081010
  Serious: Yes (Death, Life-Threatening)
  Sender: FDA-Public Use
  Company Number: B0521936A

PATIENT
  Age: 80 Year
  Sex: Female

DRUGS (3)
  1. ALKERAN [Suspect]
     Indication: BONE NEOPLASM MALIGNANT
     Route: 048
     Dates: start: 20010201, end: 20010624
  2. PANACOD [Suspect]
     Indication: ABDOMINAL PAIN
     Dosage: 3TAB PER DAY
     Route: 048
     Dates: start: 20010301, end: 20010624
  3. ANTI-NAUSEA DRUGS [Concomitant]
     Indication: NAUSEA
     Route: 065

REACTIONS (11)
  - ABDOMINAL PAIN [None]
  - ANOREXIA [None]
  - ANXIETY [None]
  - ASTHENIA [None]
  - DEATH [None]
  - MEMORY IMPAIRMENT [None]
  - MENTAL IMPAIRMENT [None]
  - MUSCLE ATROPHY [None]
  - NAUSEA [None]
  - RENAL INJURY [None]
  - RHABDOMYOLYSIS [None]
